FAERS Safety Report 13892208 (Version 3)
Quarter: 2017Q3

REPORT INFORMATION
  Report Type: Spontaneous
  Country: DK (occurrence: DK)
  Receive Date: 20170822
  Receipt Date: 20170830
  Transmission Date: 20171127
  Serious: Yes (Other)
  Sender: FDA-Public Use
  Company Number: DK-JNJFOC-20170816745

PATIENT
  Age: 53 Year
  Sex: Male

DRUGS (3)
  1. XEPLION [Suspect]
     Active Substance: PALIPERIDONE PALMITATE
     Indication: SCHIZOPHRENIA
     Route: 030
     Dates: start: 20150610
  2. RISPERIDONE STADA [Concomitant]
     Indication: SCHIZOPHRENIA
     Route: 065
     Dates: start: 20140305
  3. LACTULOSE MIP [Concomitant]
     Indication: CONSTIPATION
     Route: 065
     Dates: start: 20160411

REACTIONS (6)
  - Affect lability [Not Recovered/Not Resolved]
  - Inappropriate schedule of drug administration [Unknown]
  - Off label use [Unknown]
  - Pressure of speech [Not Recovered/Not Resolved]
  - Drug ineffective [Unknown]
  - Schizophrenia [Not Recovered/Not Resolved]

NARRATIVE: CASE EVENT DATE: 201707
